FAERS Safety Report 17358694 (Version 2)
Quarter: 2020Q1

REPORT INFORMATION
  Report Type: Spontaneous
  Country: PK (occurrence: PK)
  Receive Date: 20200201
  Receipt Date: 20200213
  Transmission Date: 20200409
  Serious: Yes (Hospitalization)
  Sender: FDA-Public Use
  Company Number: PK-NOVOPROD-706970

PATIENT
  Sex: Female

DRUGS (1)
  1. NOVOMIX 50 FLEXPEN [Suspect]
     Active Substance: INSULIN ASPART
     Indication: DIABETES MELLITUS
     Dosage: 16 IU, QD (10+6 UNITS)
     Route: 058
     Dates: end: 20191225

REACTIONS (5)
  - Lung disorder [Unknown]
  - Hypoglycaemia [Unknown]
  - Renal disorder [Unknown]
  - Myocardial infarction [Recovered/Resolved]
  - Blood glucose fluctuation [Recovered/Resolved]

NARRATIVE: CASE EVENT DATE: 20191208
